FAERS Safety Report 8959402 (Version 2)
Quarter: 2012Q4

REPORT INFORMATION
  Report Type: 
  Country: CN (occurrence: CN)
  Receive Date: 20121212
  Receipt Date: 20121220
  Transmission Date: 20130627
  Serious: Yes (Other)
  Sender: FDA-Public Use
  Company Number: CN-BAYER-2012-129996

PATIENT
  Age: 60 Year
  Sex: Female

DRUGS (1)
  1. IOPROMIDE [Suspect]
     Indication: CT ARTERIOGRAM
     Dosage: 60 ml, UNK

REACTIONS (10)
  - Erythema [Recovered/Resolved]
  - Vision blurred [Recovered/Resolved]
  - Swelling face [Recovered/Resolved]
  - Musculoskeletal discomfort [Not Recovered/Not Resolved]
  - Eyelid function disorder [Recovered/Resolved]
  - Dyskinesia [Recovered/Resolved]
  - Palpitations [Recovered/Resolved]
  - Asphyxia [Recovered/Resolved]
  - Heart rate increased [Recovered/Resolved]
  - Pyrexia [Recovered/Resolved]
